FAERS Safety Report 7416101-X (Version None)
Quarter: 2011Q2

REPORT INFORMATION
  Report Type: 
  Country: None (occurrence: None)
  Receive Date: 20110414
  Receipt Date: 20110406
  Transmission Date: 20111010
  Serious: Yes (Life-Threatening)
  Sender: FDA-Public Use
  Company Number: FI-ELI_LILLY_AND_COMPANY-FI201009006326

PATIENT
  Sex: Male
  Weight: 36.5 kg

DRUGS (4)
  1. STRATTERA [Suspect]
     Dosage: 40 MG, QD
  2. STRATTERA [Suspect]
     Dosage: 18 MG, QD
     Dates: start: 20101012
  3. STRATTERA [Suspect]
     Indication: ATTENTION DEFICIT/HYPERACTIVITY DISORDER
     Dosage: 25 MG, DAILY (1/D)
     Route: 048
     Dates: start: 20100201, end: 20100914
  4. STRATTERA [Suspect]
     Dosage: 25 MG, QD

REACTIONS (9)
  - ABDOMINAL PAIN UPPER [None]
  - DECREASED APPETITE [None]
  - NEUTROPENIA [None]
  - WHITE BLOOD CELL DISORDER [None]
  - FATIGUE [None]
  - WEIGHT DECREASED [None]
  - PSYCHOTIC DISORDER [None]
  - AGITATION [None]
  - HALLUCINATION [None]
